FAERS Safety Report 7087863-9 (Version None)
Quarter: 2010Q4

REPORT INFORMATION
  Report Type: 
  Country: None (occurrence: None)
  Receive Date: 20101108
  Receipt Date: 20101028
  Transmission Date: 20110411
  Serious: Yes (Other)
  Sender: FDA-Public Use
  Company Number: KR-JNJFOC-20101100619

PATIENT
  Sex: Female

DRUGS (2)
  1. DURAGESIC-100 [Suspect]
     Indication: PAIN MANAGEMENT
     Route: 062
  2. MOTILIUM M [Concomitant]
     Indication: ANTIEMETIC SUPPORTIVE CARE
     Dosage: 2 TABLET
     Route: 048

REACTIONS (6)
  - CHEST DISCOMFORT [None]
  - COLD SWEAT [None]
  - DIZZINESS [None]
  - HALLUCINATION [None]
  - SENSATION OF HEAVINESS [None]
  - VISUAL IMPAIRMENT [None]
